FAERS Safety Report 12170892 (Version 1)
Quarter: 2016Q1

REPORT INFORMATION
  Report Type: Spontaneous
  Country: US (occurrence: US)
  Receive Date: 20160311
  Receipt Date: 20160311
  Transmission Date: 20160526
  Serious: No
  Sender: FDA-Public Use
  Company Number: GXBR2012US001773

PATIENT
  Sex: Female
  Weight: 104.31 kg

DRUGS (7)
  1. BUSPAR [Concomitant]
     Active Substance: BUSPIRONE HYDROCHLORIDE
     Dosage: UNK DF, UNK
     Dates: start: 1992, end: 1992
  2. ZOLOFT [Concomitant]
     Active Substance: SERTRALINE HYDROCHLORIDE
     Dosage: 20 MG, UNK
     Dates: start: 2000, end: 2000
  3. VALERIAN [Concomitant]
     Active Substance: VALERIAN
     Dosage: UNK DF, UNK
     Dates: start: 2006, end: 2006
  4. METOCLOPRAMIDE TABLETS USP [Suspect]
     Active Substance: METOCLOPRAMIDE
     Indication: IRRITABLE BOWEL SYNDROME
     Dosage: UNK MG, UNK
     Dates: start: 1990, end: 2006
  5. TRAZODONE [Concomitant]
     Active Substance: TRAZODONE HYDROCHLORIDE
     Dosage: 100 MG, UNK
     Dates: start: 2000, end: 2000
  6. METOCLOPRAMIDE TABLETS USP [Suspect]
     Active Substance: METOCLOPRAMIDE
     Indication: GASTROOESOPHAGEAL REFLUX DISEASE
  7. PROPULSID [Concomitant]
     Active Substance: CISAPRIDE
     Dosage: 2 MG, UNK
     Dates: start: 2000, end: 2000

REACTIONS (2)
  - Dyskinesia [Not Recovered/Not Resolved]
  - Tardive dyskinesia [Not Recovered/Not Resolved]

NARRATIVE: CASE EVENT DATE: 2005
